FAERS Safety Report 4317037-3 (Version None)
Quarter: 2004Q1

REPORT INFORMATION
  Report Type: 
  Country: None (occurrence: None)
  Receive Date: 20040312
  Receipt Date: 20040211
  Transmission Date: 20041129
  Serious: Yes (Hospitalization)
  Sender: FDA-Public Use
  Company Number: KII-2004-0007878

PATIENT
  Age: 68 Year
  Sex: Male

DRUGS (1)
  1. SPECTRACEF [Suspect]
     Indication: BRONCHITIS ACUTE
     Dosage: 400 MG, BID
     Dates: start: 20040101

REACTIONS (3)
  - DRUG INEFFECTIVE [None]
  - HYPERCAPNIA [None]
  - RESPIRATION ABNORMAL [None]
